FAERS Safety Report 7757805-9 (Version None)
Quarter: 2011Q3

REPORT INFORMATION
  Report Type: 
  Country: None (occurrence: None)
  Receive Date: 20110918
  Receipt Date: 20110907
  Transmission Date: 20111222
  Serious: Yes (Hospitalization)
  Sender: FDA-Public Use
  Company Number: US-ASTRAZENECA-2011SE40634

PATIENT
  Age: 49 Year
  Sex: Male

DRUGS (3)
  1. AMBIEN [Concomitant]
  2. VALIUM [Concomitant]
  3. SEROQUEL [Suspect]
     Indication: SCHIZOPHRENIA, PARANOID TYPE
     Route: 048

REACTIONS (14)
  - INSOMNIA [None]
  - ANXIETY [None]
  - VIOLENCE-RELATED SYMPTOM [None]
  - DRUG DOSE OMISSION [None]
  - AGGRESSION [None]
  - DELUSIONAL DISORDER, UNSPECIFIED TYPE [None]
  - PARANOIA [None]
  - TREATMENT NONCOMPLIANCE [None]
  - EUPHORIC MOOD [None]
  - PSYCHOMOTOR HYPERACTIVITY [None]
  - HALLUCINATION [None]
  - CONFUSIONAL STATE [None]
  - MANIA [None]
  - DELUSION OF GRANDEUR [None]
